FAERS Safety Report 7712820-6 (Version None)
Quarter: 2011Q3

REPORT INFORMATION
  Report Type: 
  Country: None (occurrence: None)
  Receive Date: 20110826
  Receipt Date: 20110817
  Transmission Date: 20111222
  Serious: Yes (Other)
  Sender: FDA-Public Use
  Company Number: PHEH2011US01829

PATIENT
  Sex: Female

DRUGS (1)
  1. EXJADE [Suspect]
     Indication: HAEMATOCRIT DECREASED
     Dosage: 1500 MG, DAILY
     Route: 048
     Dates: start: 20060816

REACTIONS (1)
  - INFECTION [None]
